FAERS Safety Report 8326541-2 (Version None)
Quarter: 2012Q2

REPORT INFORMATION
  Report Type: 
  Country: None (occurrence: None)
  Receive Date: 20120501
  Receipt Date: 20110729
  Transmission Date: 20120825
  Serious: Yes (Hospitalization)
  Sender: FDA-Public Use
  Company Number: US-SANOFI-AVENTIS-2011SA036540

PATIENT
  Age: 41 Year
  Sex: Female

DRUGS (6)
  1. APIDRA [Suspect]
     Route: 058
     Dates: start: 20100701
  2. CYMBALTA [Concomitant]
  3. LISINOPRIL [Concomitant]
  4. LEVOTHYROXINE SODIUM [Concomitant]
  5. AMLODIPINE [Concomitant]
  6. LIPITOR [Concomitant]

REACTIONS (3)
  - WRONG TECHNIQUE IN DRUG USAGE PROCESS [None]
  - DRUG INTERACTION [None]
  - HYPERGLYCAEMIA [None]
